FAERS Safety Report 5227389-8 (Version None)
Quarter: 2007Q1

REPORT INFORMATION
  Report Type: 
  Country: None (occurrence: None)
  Receive Date: 20070202
  Receipt Date: 20070125
  Transmission Date: 20070707
  Serious: Yes (Death, Hospitalization, Other)
  Sender: FDA-Public Use
  Company Number: US-NOVOPROD-252354

PATIENT
  Sex: Female
  Weight: 54.5 kg

DRUGS (7)
  1. NOVOSEVEN [Suspect]
     Indication: CEREBRAL HAEMORRHAGE
     Dosage: 1 DOSE
     Route: 042
     Dates: start: 20060407, end: 20060407
  2. ACETAMINOPHEN [Concomitant]
     Dosage: 625 MG, QD
     Route: 045
     Dates: start: 20060407, end: 20060407
  3. LABETALOL HCL [Concomitant]
     Dosage: 10 MG, QD
     Route: 042
     Dates: start: 20060407, end: 20060407
  4. POTASSIUM CHLORIDE [Concomitant]
     Dosage: 20 MEQ, QD
     Route: 045
     Dates: start: 20060407, end: 20060407
  5. HYDRALAZINE HCL [Concomitant]
     Dosage: 10 UNK, QD
     Route: 042
     Dates: start: 20060407, end: 20060407
  6. LORAZEPAM [Concomitant]
     Dosage: .5 MG, QD
     Route: 045
     Dates: start: 20060407, end: 20060407
  7. ASPIRIN [Concomitant]
     Dosage: 81 MG, UNK

REACTIONS (2)
  - BRAIN HERNIATION [None]
  - CEREBRAL INFARCTION [None]
